FAERS Safety Report 8530265-6 (Version None)
Quarter: 2012Q3

REPORT INFORMATION
  Report Type: 
  Country: None (occurrence: None)
  Receive Date: 20120723
  Receipt Date: 20120716
  Transmission Date: 20120928
  Serious: Yes (Hospitalization)
  Sender: FDA-Public Use
  Company Number: US-CELGENEUS-163-21880-11040554

PATIENT
  Sex: Male

DRUGS (25)
  1. AMITRIPTYLINE HCL [Concomitant]
     Dosage: 10 MILLIGRAM
     Route: 048
  2. TAMSULOSIN HCL [Concomitant]
     Dosage: .4 MILLIGRAM
     Route: 048
  3. INDAPAMIDE [Concomitant]
     Dosage: .5 TAB
     Route: 048
  4. FINASTERIDE [Concomitant]
     Dosage: 5 MILLIGRAM
     Route: 048
  5. AMLODIPINE [Concomitant]
     Dosage: 10 MILLIGRAM
     Route: 048
  6. ADVAIR DISKUS 100/50 [Concomitant]
     Dosage: 250MCG/50MCG  1 PUFF
     Route: 055
  7. NITROSTAT [Concomitant]
     Dosage: 1
     Route: 060
  8. REVLIMID [Suspect]
     Indication: MULTIPLE MYELOMA
     Dosage: 15 MILLIGRAM
     Route: 048
     Dates: start: 20110301
  9. MULTI-VITAMINS [Concomitant]
     Dosage: 1
     Route: 048
  10. ALBUTEROL [Concomitant]
     Dosage: 2 PUFFS
     Route: 055
  11. CETAPHIL [Concomitant]
     Route: 061
  12. SIMVASTATIN [Concomitant]
     Dosage: 20 MILLIGRAM
     Route: 048
  13. PLAVIX [Concomitant]
     Dosage: .5 TAB
     Route: 048
  14. METFORMIN HYDROCHLORIDE [Concomitant]
     Dosage: 500 MILLIGRAM
     Route: 048
  15. LOVAZA [Concomitant]
     Dosage: 2 IN AM + 2 IN PM
     Route: 048
  16. DEXAMETHASONE [Concomitant]
     Dosage: 20 MILLIGRAM
     Route: 065
  17. CARBIDOPA AND LEVODOPA [Concomitant]
     Dosage: 25MG/100MG
     Route: 048
  18. OXYCODONE HCL [Concomitant]
     Dosage: 5 MILLIGRAM
     Route: 048
  19. COREG [Concomitant]
     Dosage: .5 TABLET
     Route: 048
  20. LASIX [Concomitant]
     Dosage: 20 MILLIGRAM
     Route: 048
  21. COMPAZINE [Concomitant]
     Dosage: 10 MILLIGRAM
     Route: 048
  22. PREDNISONE [Concomitant]
     Indication: ASTHMA
     Dosage: 40 MILLIGRAM
     Route: 048
     Dates: start: 20110301
  23. LISINOPRIL [Concomitant]
     Route: 048
  24. MAALOX MAX [Concomitant]
     Dosage: 2 TABLET
     Route: 048
  25. ASPIRIN [Concomitant]
     Dosage: 81 MILLIGRAM
     Route: 048

REACTIONS (3)
  - ASTHMA [None]
  - CONTUSION [None]
  - FATIGUE [None]
